FAERS Safety Report 10079912 (Version 1)
Quarter: 2014Q2

REPORT INFORMATION
  Report Type: Spontaneous
  Country: DE (occurrence: DE)
  Receive Date: 20140415
  Receipt Date: 20140415
  Transmission Date: 20141212
  Serious: Yes (Congenital Anomaly)
  Sender: FDA-Public Use
  Company Number: DE-WATSON-2013-25081

PATIENT
  Sex: Male
  Weight: 3.22 kg

DRUGS (3)
  1. MIRTAZAPINE (UNKNOWN) [Suspect]
     Indication: ANXIETY DISORDER
     Dosage: 3.5 MG, UNKNOWN
     Route: 064
  2. MIRTAZAPINE (UNKNOWN) [Suspect]
     Dosage: 7.5 MG, UNKNOWN
     Route: 064
  3. TAVOR [Concomitant]
     Indication: ANXIETY DISORDER
     Dosage: UNK UNK, UNKNOWN
     Route: 064

REACTIONS (2)
  - Pyloric stenosis [Recovered/Resolved with Sequelae]
  - Exposure during pregnancy [Unknown]
